FAERS Safety Report 19227908 (Version 10)
Quarter: 2021Q4

REPORT INFORMATION
  Report Type: Spontaneous
  Country: CA (occurrence: CA)
  Receive Date: 20210507
  Receipt Date: 20211029
  Transmission Date: 20220303
  Serious: Yes (Hospitalization, Other)
  Sender: FDA-Public Use
  Company Number: CA-CELLTRION INC.-2021CA006172

PATIENT

DRUGS (12)
  1. INFLECTRA [Suspect]
     Active Substance: INFLIXIMAB-DYYB
     Indication: Crohn^s disease
     Dosage: 300 MG, INDUCTION AT WEEKS 0, 2, 6; MAINTENANCE EVERY 8 WEEKS
     Route: 042
     Dates: start: 20210122, end: 20210304
  2. INFLECTRA [Suspect]
     Active Substance: INFLIXIMAB-DYYB
     Dosage: 300 MG, INDUCTION AT WEEKS 0, 2, 6; MAINTENANCE EVERY 8 WEEKS
     Route: 042
     Dates: start: 20210304
  3. INFLECTRA [Suspect]
     Active Substance: INFLIXIMAB-DYYB
     Dosage: 300 MG, INDUCTION AT WEEKS 0, 2, 6; MAINTENANCE EVERY 8 WEEKS (RE-INDUCTION
     Route: 042
     Dates: start: 20210517
  4. INFLECTRA [Suspect]
     Active Substance: INFLIXIMAB-DYYB
     Dosage: 300 MG, INDUCTION AT WEEKS 0, 2, 6; MAINTENANCE EVERY 8 WEEKS (RE-INDUCTION
     Route: 042
     Dates: start: 20210601
  5. INFLECTRA [Suspect]
     Active Substance: INFLIXIMAB-DYYB
     Dosage: 300 MG, INDUCTION AT WEEKS 0, 2, 6; MAINTENANCE EVERY 8 WEEKS (RE-INDUCTION
     Route: 042
     Dates: start: 20210629
  6. INFLECTRA [Suspect]
     Active Substance: INFLIXIMAB-DYYB
     Dosage: 300 MG, INDUCTION AT WEEKS 0, 2, 6; MAINTENANCE EVERY 8 WEEKS (RE-INDUCTION
     Route: 042
     Dates: start: 20210824
  7. INFLECTRA [Suspect]
     Active Substance: INFLIXIMAB-DYYB
     Dosage: 300 MG, INDUCTION AT WEEKS 0, 2, 6; MAINTENANCE EVERY 8 WEEKS (RE-INDUCTION
     Route: 042
     Dates: start: 20211019
  8. BISOPROLOL [Concomitant]
     Active Substance: BISOPROLOL
     Dosage: 1 DF
     Route: 065
  9. KEPPRA [Concomitant]
     Active Substance: LEVETIRACETAM
     Dosage: 1 DF
     Route: 065
  10. LASIX [Concomitant]
     Active Substance: FUROSEMIDE
     Dosage: 1 DF
     Route: 065
  11. PANTOPRAZOLE SODIUM [Concomitant]
     Active Substance: PANTOPRAZOLE SODIUM
     Dosage: 1 DF
     Route: 065
  12. RAMIPRIL [Concomitant]
     Active Substance: RAMIPRIL
     Dosage: 1 DF
     Route: 065

REACTIONS (9)
  - Road traffic accident [Not Recovered/Not Resolved]
  - Upper limb fracture [Not Recovered/Not Resolved]
  - Facial bones fracture [Unknown]
  - Cerebral haemorrhage [Unknown]
  - Hand fracture [Recovering/Resolving]
  - Wrist fracture [Recovering/Resolving]
  - Off label use [Unknown]
  - Off label use [Unknown]
  - Skin abrasion [Recovering/Resolving]

NARRATIVE: CASE EVENT DATE: 20210401
